FAERS Safety Report 8030360-4 (Version None)
Quarter: 2012Q1

REPORT INFORMATION
  Report Type: 
  Country: None (occurrence: None)
  Receive Date: 20120109
  Receipt Date: 20120109
  Transmission Date: 20120608
  Serious: Yes (Other)
  Sender: FDA-Public Use
  Company Number: None

PATIENT
  Sex: Female
  Weight: 55.791 kg

DRUGS (9)
  1. ZOLOFT [Concomitant]
     Route: 048
  2. EVISTA [Concomitant]
     Route: 048
  3. FLUTICASONE SPRAY [Concomitant]
  4. DIOVAN HCT [Concomitant]
     Route: 048
  5. OMEPRAZOLE [Concomitant]
     Route: 048
  6. TRAZODONE HCL [Concomitant]
     Route: 048
  7. LEVOFLOXACIN [Suspect]
     Indication: SINUSITIS
     Dosage: 500 MG
     Route: 048
     Dates: start: 20111221, end: 20111231
  8. ZYRTEC [Concomitant]
     Route: 048
  9. VITAMIN B6 [Concomitant]
     Route: 048

REACTIONS (5)
  - ARTHRALGIA [None]
  - MUSCULOSKELETAL PAIN [None]
  - PAIN IN EXTREMITY [None]
  - FLUID RETENTION [None]
  - SWELLING [None]
